FAERS Safety Report 23438244 (Version 2)
Quarter: 2024Q1

REPORT INFORMATION
  Report Type: Spontaneous
  Country: JP (occurrence: JP)
  Receive Date: 20240124
  Receipt Date: 20240208
  Transmission Date: 20240410
  Serious: Yes (Other)
  Sender: FDA-Public Use
  Company Number: JP-BAYER-2024A013638

PATIENT
  Age: 36 Year
  Sex: Female

DRUGS (1)
  1. YAZ [Suspect]
     Active Substance: DROSPIRENONE\ETHINYL ESTRADIOL
     Indication: Dysmenorrhoea
     Dosage: DAILY DOSE 1 DF
     Route: 048
     Dates: start: 20220213, end: 20240123

REACTIONS (3)
  - Cerebral vasoconstriction [Not Recovered/Not Resolved]
  - Vomiting [None]
  - Headache [None]

NARRATIVE: CASE EVENT DATE: 20240110
